FAERS Safety Report 9308316 (Version 1)
Quarter: 2013Q2

REPORT INFORMATION
  Report Type: Spontaneous
  Country: US (occurrence: US)
  Receive Date: 20130524
  Receipt Date: 20130524
  Transmission Date: 20140414
  Serious: Yes (Death, Hospitalization)
  Sender: FDA-Public Use
  Company Number: US-GLAXOSMITHKLINE-A0793594A

PATIENT
  Age: 76 Year
  Sex: Female
  Weight: 63.6 kg

DRUGS (1)
  1. AVANDIA [Suspect]
     Indication: TYPE 2 DIABETES MELLITUS
     Route: 048
     Dates: start: 200611, end: 20080427

REACTIONS (2)
  - Myocardial infarction [Fatal]
  - Cardiac failure congestive [Unknown]
